FAERS Safety Report 14203134 (Version 1)
Quarter: 2017Q4

REPORT INFORMATION
  Report Type: Spontaneous
  Country: US (occurrence: US)
  Receive Date: 20171120
  Receipt Date: 20171120
  Transmission Date: 20180321
  Serious: No
  Sender: FDA-Public Use
  Company Number: US-AUROBINDO-AUR-APU-2017-34723

PATIENT
  Sex: Female

DRUGS (1)
  1. MODAFINIL TABLETS USP 100MG [Suspect]
     Active Substance: MODAFINIL
     Indication: FIBROMYALGIA
     Route: 065

REACTIONS (2)
  - Off label use [Unknown]
  - Therapeutic response unexpected [Unknown]
